FAERS Safety Report 11595727 (Version 1)
Quarter: 2015Q4

REPORT INFORMATION
  Report Type: Spontaneous
  Country: BR (occurrence: BR)
  Receive Date: 20151006
  Receipt Date: 20151006
  Transmission Date: 20160304
  Serious: Yes (Other)
  Sender: FDA-Public Use
  Company Number: BR-ACCORD-034059

PATIENT
  Age: 45 Year
  Sex: Male
  Weight: 50.2 kg

DRUGS (6)
  1. CARBOPLATIN. [Suspect]
     Active Substance: CARBOPLATIN
     Indication: OROPHARYNGEAL CANCER
     Dosage: LATER RECEIVED FROM 11-MAR-2015 AT THE DOSE OF 450 MG
     Dates: start: 20150311
  2. PACLITAXEL/PACLITAXEL LIPOSOME [Suspect]
     Active Substance: PACLITAXEL
     Indication: OROPHARYNGEAL CANCER
     Dosage: 280 MG
     Dates: start: 20150311
  3. DEXAMETHASONE. [Concomitant]
     Active Substance: DEXAMETHASONE
     Dosage: 1 AMPOULE (SALINE 100 ML + DEXAMETHASONE + ONDANSETRON)
     Route: 042
     Dates: start: 20150915, end: 20150915
  4. NIMESULIDE/NIMESULIDE BETA-CYCLODEXTRINE [Concomitant]
  5. ONDANSETRON [Concomitant]
     Active Substance: ONDANSETRON
     Dosage: 1 AMPOULE (SALINE 100 ML + DEXAMETHASONE + ONDANSETRON)
     Dates: start: 20150915, end: 20150915
  6. TYLEX [Concomitant]
     Active Substance: ACETAMINOPHEN\CODEINE PHOSPHATE
     Dosage: (HOME USE)

REACTIONS (6)
  - Hypoxia [Recovered/Resolved]
  - Tachycardia [Recovered/Resolved]
  - Blood pressure decreased [None]
  - Pruritus [Recovered/Resolved]
  - Decreased appetite [Unknown]
  - Heart rate increased [None]

NARRATIVE: CASE EVENT DATE: 20140915
